FAERS Safety Report 7192244-3 (Version None)
Quarter: 2010Q4

REPORT INFORMATION
  Report Type: 
  Country: None (occurrence: None)
  Receive Date: 20101223
  Receipt Date: 20101210
  Transmission Date: 20110411
  Serious: Yes (Hospitalization)
  Sender: FDA-Public Use
  Company Number: GXKR2010GB14069

PATIENT
  Age: 21 Year
  Sex: Male

DRUGS (8)
  1. CYTARABINE (NGX) [Suspect]
     Indication: ACUTE LYMPHOCYTIC LEUKAEMIA
     Dosage: 30 MG, QMO
     Route: 037
  2. HYDROCORTISONE (NGX) [Suspect]
     Indication: ACUTE LYMPHOCYTIC LEUKAEMIA
     Dosage: 12.50 MG, QMO
     Route: 037
  3. METHOTREXATE (NGX) [Suspect]
     Indication: ACUTE LYMPHOCYTIC LEUKAEMIA
     Dosage: 12.50 MG, QMO
     Route: 037
  4. METHOTREXATE (NGX) [Suspect]
     Dosage: 10 MG, QD
     Route: 048
  5. PREDNISONE (NGX) [Suspect]
     Indication: ACUTE LYMPHOCYTIC LEUKAEMIA
     Route: 048
  6. VINCRISTINE (NGX) [Suspect]
     Indication: ACUTE LYMPHOCYTIC LEUKAEMIA
     Dosage: 1 MG, QMO
     Route: 042
  7. CYCLOPHOSPHAMIDE [Suspect]
     Indication: ACUTE LYMPHOCYTIC LEUKAEMIA
     Route: 065
  8. MERCAPTOPURINE [Suspect]
     Indication: ACUTE LYMPHOCYTIC LEUKAEMIA
     Route: 048

REACTIONS (10)
  - ANAEMIA [None]
  - FLUID INTAKE REDUCED [None]
  - GRAND MAL CONVULSION [None]
  - HAEMODIALYSIS [None]
  - HAEMOLYTIC URAEMIC SYNDROME [None]
  - HYPERTENSION [None]
  - JAUNDICE [None]
  - OEDEMA [None]
  - OLIGURIA [None]
  - PLASMAPHERESIS [None]
